FAERS Safety Report 16212102 (Version 3)
Quarter: 2020Q3

REPORT INFORMATION
  Report Type: Spontaneous
  Country: CH (occurrence: CH)
  Receive Date: 20190418
  Receipt Date: 20200708
  Transmission Date: 20201102
  Serious: Yes (Hospitalization)
  Sender: FDA-Public Use
  Company Number: CH-TEVA-2019-CH-1039019

PATIENT
  Age: 48 Year
  Sex: Female

DRUGS (38)
  1. ONDANSETRON [Suspect]
     Active Substance: ONDANSETRON
     Dates: start: 20190328
  2. BACTRIM [Suspect]
     Active Substance: SULFAMETHOXAZOLE\TRIMETHOPRIM
  3. BACTRIM [Suspect]
     Active Substance: SULFAMETHOXAZOLE\TRIMETHOPRIM
     Dates: start: 20190404
  4. TACROLIMUS. [Suspect]
     Active Substance: TACROLIMUS
     Route: 041
     Dates: start: 20190323
  5. MORPHINE [Suspect]
     Active Substance: MORPHINE
     Route: 041
     Dates: start: 20190325, end: 20190326
  6. EMEND [Suspect]
     Active Substance: APREPITANT
     Dates: start: 20190314, end: 20190326
  7. PERFALGAN [Suspect]
     Active Substance: ACETAMINOPHEN
     Dates: start: 20190318, end: 20190318
  8. PREGABALIN. [Suspect]
     Active Substance: PREGABALIN
     Dosage: IN TOTAL
     Dates: start: 20190326, end: 20190326
  9. TORASEMIDE [Suspect]
     Active Substance: TORSEMIDE
     Dates: start: 20190327
  10. NEXIUM [Suspect]
     Active Substance: ESOMEPRAZOLE MAGNESIUM
     Route: 042
     Dates: start: 20190319, end: 20190326
  11. MORPHINE [Suspect]
     Active Substance: MORPHINE
     Dates: start: 20190406
  12. URSOFALK [Suspect]
     Active Substance: URSODIOL
     Dates: start: 20190306, end: 20190326
  13. PERFALGAN [Suspect]
     Active Substance: ACETAMINOPHEN
     Dates: start: 20190325, end: 20190325
  14. BACTRIM [Suspect]
     Active Substance: SULFAMETHOXAZOLE\TRIMETHOPRIM
     Dosage: IN TOTAL
     Dates: start: 20190320, end: 20190320
  15. BACTRIM [Suspect]
     Active Substance: SULFAMETHOXAZOLE\TRIMETHOPRIM
     Dosage: IN TOTAL
     Dates: start: 20190322, end: 20190322
  16. FLUCONAZOLE. [Suspect]
     Active Substance: FLUCONAZOLE
     Dates: start: 20190405
  17. CALCIUM GLUCONATE. [Suspect]
     Active Substance: CALCIUM GLUCONATE
     Route: 042
     Dates: start: 20190322, end: 20190326
  18. DOXYLAMINE;FOLIC ACID;PYRIDOXINE [Suspect]
     Active Substance: DOXYLAMINE\FOLIC ACID\PYRIDOXINE
     Dates: start: 20190317, end: 20190326
  19. URSOFALK [Suspect]
     Active Substance: URSODIOL
     Dates: start: 20190401
  20. PERFALGAN [Suspect]
     Active Substance: ACETAMINOPHEN
     Dates: start: 20190406
  21. ONDANSETRON [Suspect]
     Active Substance: ONDANSETRON
     Route: 042
     Dates: start: 20190313, end: 20190326
  22. TORASEMIDE [Suspect]
     Active Substance: TORSEMIDE
     Dates: start: 20190307, end: 20190326
  23. NEXIUM [Suspect]
     Active Substance: ESOMEPRAZOLE MAGNESIUM
     Dates: start: 20190328
  24. METOCLOPRAMIDE. [Suspect]
     Active Substance: METOCLOPRAMIDE
     Dates: start: 20190314, end: 20190326
  25. METOCLOPRAMIDE. [Suspect]
     Active Substance: METOCLOPRAMIDE
     Dates: start: 20190401
  26. FLUDARABINE [Suspect]
     Active Substance: FLUDARABINE PHOSPHATE
     Dates: start: 20190313, end: 20190316
  27. MYCOPHENOLATE MOFETIL. [Suspect]
     Active Substance: MYCOPHENOLATE MOFETIL
     Dates: start: 20190323
  28. ACICLOVIR [Suspect]
     Active Substance: ACYCLOVIR
     Dates: start: 20190319, end: 20190326
  29. MEPHAMESON [Suspect]
     Active Substance: DEXAMETHASONE
     Route: 042
     Dates: start: 20190321, end: 20190324
  30. MYCOSTATINE [Suspect]
     Active Substance: NYSTATIN
     Dates: start: 20190306, end: 20190326
  31. CYCLOPHOSPHAMIDE. [Suspect]
     Active Substance: CYCLOPHOSPHAMIDE
     Dates: start: 20190321, end: 20190323
  32. VANCOMYCIN [Suspect]
     Active Substance: VANCOMYCIN
     Dates: start: 20190323, end: 20190325
  33. VANCOMYCIN [Suspect]
     Active Substance: VANCOMYCIN
     Dates: start: 20190405
  34. FLUCONAZOLE. [Suspect]
     Active Substance: FLUCONAZOLE
     Dosage: IN TOTAL
     Dates: start: 20190326, end: 20190326
  35. TREOSULFAN [Suspect]
     Active Substance: TREOSULFAN
     Dates: start: 20190313, end: 20190315
  36. NEUPOGEN [Suspect]
     Active Substance: FILGRASTIM
     Route: 042
     Dates: start: 20190323
  37. PERFALGAN [Suspect]
     Active Substance: ACETAMINOPHEN
     Route: 042
     Dates: start: 20190307, end: 20190307
  38. MESNA. [Suspect]
     Active Substance: MESNA
     Dates: start: 20190321, end: 20190323

REACTIONS (2)
  - Toxic epidermal necrolysis [Recovered/Resolved]
  - Pruritus [Not Recovered/Not Resolved]

NARRATIVE: CASE EVENT DATE: 20190317
